FAERS Safety Report 6486046-0 (Version None)
Quarter: 2009Q4

REPORT INFORMATION
  Report Type: 
  Country: None (occurrence: None)
  Receive Date: 20091209
  Receipt Date: 20090920
  Transmission Date: 20100525
  Serious: No
  Sender: FDA-Public Use
  Company Number: US-AMGEN-KDL358631

PATIENT
  Sex: Female

DRUGS (3)
  1. ENBREL [Suspect]
     Indication: PSORIASIS
     Route: 058
     Dates: start: 20051027
  2. NAPROXEN [Concomitant]
  3. CELEBREX [Concomitant]

REACTIONS (4)
  - EXOSTOSIS [None]
  - IMPAIRED HEALING [None]
  - POST PROCEDURAL COMPLICATION [None]
  - ROTATOR CUFF REPAIR [None]
